FAERS Safety Report 6273775-7 (Version None)
Quarter: 2009Q3

REPORT INFORMATION
  Report Type: 
  Country: None (occurrence: None)
  Receive Date: 20090720
  Receipt Date: 20090709
  Transmission Date: 20100115
  Serious: Yes (Hospitalization, Disabling)
  Sender: FDA-Public Use
  Company Number: B0434400A

PATIENT
  Sex: Male

DRUGS (21)
  1. EPZICOM [Suspect]
     Indication: ACQUIRED IMMUNODEFICIENCY SYNDROME
     Dosage: 1U PER DAY
     Route: 048
     Dates: start: 20060118, end: 20060205
  2. STOCRIN [Suspect]
     Indication: ACQUIRED IMMUNODEFICIENCY SYNDROME
     Route: 048
     Dates: start: 20060118
  3. VALGANCICLOVIR HCL [Suspect]
     Indication: CYTOMEGALOVIRUS CHORIORETINITIS
     Dosage: 900MG PER DAY
     Route: 048
     Dates: start: 20060118, end: 20060205
  4. BAKTAR [Suspect]
     Indication: ANTIFUNGAL PROPHYLAXIS
     Dosage: 20MG PER DAY
     Route: 048
     Dates: start: 20060106, end: 20060203
  5. TRUVADA [Concomitant]
     Indication: ACQUIRED IMMUNODEFICIENCY SYNDROME
     Route: 048
     Dates: start: 20060206
  6. ZITHROMAX [Concomitant]
     Indication: PROPHYLAXIS
     Route: 048
     Dates: start: 20060108
  7. DIFLUCAN [Concomitant]
     Route: 065
     Dates: start: 20060201, end: 20060205
  8. BENAMBAX [Concomitant]
     Route: 042
     Dates: start: 20060210
  9. NEUTROGIN [Concomitant]
     Indication: LEUKOPENIA
     Dosage: 250MCG PER DAY
     Route: 042
     Dates: start: 20060206, end: 20060211
  10. ZYRTEC [Concomitant]
     Indication: EOSINOPHILIC PUSTULAR FOLLICULITIS
     Dosage: 10MG PER DAY
     Route: 048
     Dates: start: 20060214
  11. ALLELOCK [Concomitant]
     Indication: EOSINOPHILIC PUSTULAR FOLLICULITIS
     Dosage: 5MG TWICE PER DAY
     Route: 048
     Dates: start: 20060107
  12. ARASENA-A [Concomitant]
     Indication: HERPES SIMPLEX
     Route: 061
     Dates: start: 20060213
  13. FUNGIZONE [Concomitant]
     Route: 048
     Dates: start: 20060201
  14. DALACIN T [Concomitant]
     Indication: EOSINOPHILIC PUSTULAR FOLLICULITIS
     Route: 061
     Dates: start: 20060121
  15. MEROPEN [Concomitant]
     Indication: INFECTION PROPHYLAXIS
     Dosage: 1.5G TWICE PER DAY
     Route: 042
     Dates: start: 20060206, end: 20060209
  16. RINDERON [Concomitant]
     Indication: UVEITIS
     Route: 031
     Dates: start: 20060315
  17. XALATAN [Concomitant]
     Indication: UVEITIS
     Route: 031
     Dates: start: 20060315
  18. SILECE [Concomitant]
     Indication: INSOMNIA
     Dosage: 2MG PER DAY
     Route: 065
     Dates: start: 20051226
  19. MINOCYCLINE HCL [Concomitant]
     Indication: EOSINOPHILIC PUSTULAR FOLLICULITIS
     Dosage: 100MG PER DAY
     Route: 048
     Dates: start: 20051221, end: 20060209
  20. ANTIHISTAMINES [Concomitant]
     Indication: EOSINOPHILIC PUSTULAR FOLLICULITIS
     Dosage: 12G PER DAY
     Route: 048
  21. UNKNOWN DRUG [Concomitant]
     Indication: ANTIFUNGAL PROPHYLAXIS
     Route: 048

REACTIONS (3)
  - LIVER DISORDER [None]
  - PYREXIA [None]
  - WHITE BLOOD CELL COUNT DECREASED [None]
